FAERS Safety Report 9996612 (Version 1)
Quarter: 2014Q1

REPORT INFORMATION
  Report Type: Spontaneous
  Country: US (occurrence: None)
  Receive Date: 20140218
  Receipt Date: 20140218
  Transmission Date: 20141002
  Serious: No
  Sender: FDA-Public Use
  Company Number: 1000050942

PATIENT
  Age: 64 Year
  Sex: Male

DRUGS (7)
  1. VIIBRYD [Suspect]
     Indication: MAJOR DEPRESSION
     Route: 048
     Dates: start: 201310
  2. VIIBRYD [Suspect]
     Indication: OBSESSIVE-COMPULSIVE DISORDER
     Route: 048
     Dates: start: 201310
  3. NEFAZODONE (NEFAZODONE) (NEFAZODONE) [Concomitant]
  4. TRAMADOL (TRAMADOL) (TRAMADOL) [Concomitant]
  5. ASPIRIN (ACETYLSALICYLIC ACID) (ACETYLSALICYLIC ACID) [Concomitant]
  6. PLAVIX (CLOPIDOGREL BISULFATE) (CLOPIDOGREL BISULFATE) [Concomitant]
  7. TYLENOL W/CODEINE (PANADEINE CO) (PANADEINE CO) [Concomitant]

REACTIONS (4)
  - Diarrhoea [None]
  - Headache [None]
  - Abnormal dreams [None]
  - Off label use [None]
